FAERS Safety Report 11024957 (Version 1)
Quarter: 2015Q2

REPORT INFORMATION
  Report Type: Spontaneous
  Country: TR (occurrence: None)
  Receive Date: 20150410
  Receipt Date: 20150410
  Transmission Date: 20150821
  Serious: Yes (Other)
  Sender: FDA-Public Use
  Company Number: 2015AKN00195

PATIENT

DRUGS (1)
  1. TRIAMCINOLONE (TRIAMCINOLONE) INJECTION [Suspect]
     Active Substance: TRIAMCINOLONE
     Indication: DIABETIC RETINAL OEDEMA
     Route: 031

REACTIONS (1)
  - Ocular hypertension [None]
